FAERS Safety Report 17767496 (Version 1)
Quarter: 2020Q2

REPORT INFORMATION
  Report Type: Spontaneous
  Country: NZ (occurrence: NZ)
  Receive Date: 20200511
  Receipt Date: 20200511
  Transmission Date: 20200714
  Serious: Yes (Other)
  Sender: FDA-Public Use
  Company Number: NVSC2020NZ126202

PATIENT
  Sex: Female

DRUGS (5)
  1. COSENTYX [Suspect]
     Active Substance: SECUKINUMAB
     Indication: PSORIATIC ARTHROPATHY
     Dosage: (WEEKLY FOR 7 MONTHS)
     Route: 058
  2. INFLIXIMAB [Suspect]
     Active Substance: INFLIXIMAB
     Indication: PRODUCT USED FOR UNKNOWN INDICATION
     Route: 065
  3. COSENTYX [Suspect]
     Active Substance: SECUKINUMAB
     Indication: PSORIASIS
  4. LEFLUNOMIDE. [Suspect]
     Active Substance: LEFLUNOMIDE
     Indication: PRODUCT USED FOR UNKNOWN INDICATION
     Route: 065
  5. ENBREL [Suspect]
     Active Substance: ETANERCEPT
     Indication: PRODUCT USED FOR UNKNOWN INDICATION
     Route: 065

REACTIONS (18)
  - Wound complication [Unknown]
  - Osteoarthritis [Unknown]
  - Vitiligo [Unknown]
  - Peripheral sensory neuropathy [Unknown]
  - Spinal osteoarthritis [Unknown]
  - Musculoskeletal pain [Unknown]
  - Psoriatic arthropathy [Unknown]
  - Poor quality sleep [Unknown]
  - Back pain [Unknown]
  - Quality of life decreased [Unknown]
  - Intervertebral disc degeneration [Unknown]
  - Polyarthritis [Unknown]
  - Hepatic function abnormal [Unknown]
  - Psoriasis [Unknown]
  - Chronic inflammatory demyelinating polyradiculoneuropathy [Unknown]
  - Hypoaesthesia [Unknown]
  - Drug ineffective [Unknown]
  - Nausea [Unknown]

NARRATIVE: CASE EVENT DATE: 201703
